FAERS Safety Report 5326708-1 (Version None)
Quarter: 2007Q2

REPORT INFORMATION
  Report Type: 
  Country: None (occurrence: None)
  Receive Date: 20070516
  Receipt Date: 20070515
  Transmission Date: 20071010
  Serious: Yes (Death)
  Sender: FDA-Public Use
  Company Number: JP-BOEHRINGER INGELHEIM PHARMACEUTICALS, INC.-2007-BP-06589NB

PATIENT
  Age: 63 Year
  Sex: Male

DRUGS (2)
  1. BI-SIFROL TABLETS [Suspect]
     Indication: PARKINSON'S DISEASE
     Route: 048
     Dates: start: 20060402, end: 20070511
  2. MADOPAR [Concomitant]
     Indication: PARKINSON'S DISEASE
     Route: 048

REACTIONS (1)
  - PLEURAL EFFUSION [None]
